FAERS Safety Report 6660710-2 (Version None)
Quarter: 2010Q1

REPORT INFORMATION
  Report Type: 
  Country: None (occurrence: None)
  Receive Date: 20100331
  Receipt Date: 20100318
  Transmission Date: 20100710
  Serious: Yes (Hospitalization)
  Sender: FDA-Public Use
  Company Number: US-SANOFI-AVENTIS-A03200904879

PATIENT
  Age: 58 Year
  Sex: Female
  Weight: 82.09 kg

DRUGS (12)
  1. ZOLPIDEM TARTRATE [Suspect]
     Indication: INSOMNIA
     Route: 048
     Dates: start: 20090720, end: 20090801
  2. ZOLPIDEM TARTRATE [Suspect]
     Dosage: DOSE TEXT: TOOK A 5 MG ON THE EVENING OF 17-AUG-2009 AND 19-AUG-2009UNIT DOSE: 5 MG
     Route: 048
     Dates: start: 20090817, end: 20090819
  3. MIRALAX [Concomitant]
     Indication: CONSTIPATION
  4. SIMVASTATIN [Concomitant]
  5. HYDROCHLOROTHIAZIDE [Concomitant]
     Indication: HYPERTENSION
  6. LISINOPRIL [Concomitant]
     Indication: HYPERTENSION
  7. ASPIRIN [Concomitant]
     Indication: DRUG USE FOR UNKNOWN INDICATION
  8. VITAMIN D [Concomitant]
     Indication: PROPHYLAXIS
     Dates: end: 20090823
  9. VITAMIN C [Concomitant]
     Indication: PROPHYLAXIS
     Dates: end: 20090823
  10. VITAMIN B COMPLEX TAB [Concomitant]
     Indication: PROPHYLAXIS
     Route: 054
     Dates: end: 20090823
  11. MULTI-VITAMINS [Concomitant]
     Indication: PROPHYLAXIS
     Dates: end: 20090823
  12. NITROFURANTOIN [Concomitant]
     Indication: URINARY TRACT INFECTION
     Dates: start: 20090801, end: 20090817

REACTIONS (2)
  - ABDOMINAL PAIN LOWER [None]
  - DIVERTICULUM [None]
